FAERS Safety Report 10882221 (Version 1)
Quarter: 2015Q1

REPORT INFORMATION
  Report Type: Spontaneous
  Country: US (occurrence: None)
  Receive Date: 20150226
  Receipt Date: 20150226
  Transmission Date: 20150721
  Serious: Yes (Hospitalization)
  Sender: FDA-Public Use
  Company Number: None

PATIENT
  Age: 14 Year
  Sex: Male
  Weight: 53.8 kg

DRUGS (1)
  1. ONCASPAR [Suspect]
     Active Substance: PEGASPARGASE
     Dosage: 4222.5IU ON DAY 4
     Dates: end: 20130718

REACTIONS (13)
  - Chills [None]
  - Blood glucose increased [None]
  - Pupils unequal [None]
  - Headache [None]
  - Hydrocephalus [None]
  - Hypothalamo-pituitary disorder [None]
  - Brain midline shift [None]
  - Intraventricular haemorrhage [None]
  - Pyrexia [None]
  - Fatigue [None]
  - Unresponsive to stimuli [None]
  - Vomiting [None]
  - Pupillary reflex impaired [None]

NARRATIVE: CASE EVENT DATE: 20130722
